FAERS Safety Report 8767227 (Version 5)
Quarter: 2015Q4

REPORT INFORMATION
  Report Type: Spontaneous
  Country: US (occurrence: US)
  Receive Date: 20120904
  Receipt Date: 20151030
  Transmission Date: 20160305
  Serious: Yes (Other)
  Sender: FDA-Public Use
  Company Number: US-GLAXOSMITHKLINE-A0991818A

PATIENT
  Age: 42 Year
  Sex: Male

DRUGS (2)
  1. PAXIL CR [Suspect]
     Active Substance: PAROXETINE HYDROCHLORIDE
     Indication: ANXIETY
     Route: 065
     Dates: start: 2002
  2. PAXIL CR [Suspect]
     Active Substance: PAROXETINE HYDROCHLORIDE
     Indication: DEPRESSION

REACTIONS (3)
  - Homicide [Unknown]
  - Toxicity to various agents [Unknown]
  - Aggression [Unknown]

NARRATIVE: CASE EVENT DATE: 200208
